FAERS Safety Report 10035940 (Version 7)
Quarter: 2015Q3

REPORT INFORMATION
  Report Type: Report from Study
  Country: JP (occurrence: JP)
  Receive Date: 20140325
  Receipt Date: 20150916
  Transmission Date: 20151125
  Serious: Yes (Other)
  Sender: FDA-Public Use
  Company Number: PHHY2013JP091045

PATIENT
  Age: 30 Year
  Sex: Female

DRUGS (41)
  1. CLOZARIL [Suspect]
     Active Substance: CLOZAPINE
     Dosage: 50 MG, QD
     Route: 048
     Dates: start: 20130402, end: 20130404
  2. CLOZARIL [Suspect]
     Active Substance: CLOZAPINE
     Dosage: 450 MG, QD
     Route: 048
     Dates: start: 20130524, end: 20130526
  3. PURSENID [Concomitant]
     Indication: PRODUCT USED FOR UNKNOWN INDICATION
     Dosage: 36 MG, QD
     Route: 048
     Dates: start: 20130329
  4. CLOZARIL [Suspect]
     Active Substance: CLOZAPINE
     Dosage: 100 MG, QD
     Route: 048
     Dates: start: 20130407, end: 20130408
  5. CLOZARIL [Suspect]
     Active Substance: CLOZAPINE
     Dosage: 175 MG, QD
     Route: 048
     Dates: start: 20130415, end: 20130418
  6. CLOZARIL [Suspect]
     Active Substance: CLOZAPINE
     Dosage: 350 MG, QD
     Route: 048
     Dates: start: 20130517, end: 20130519
  7. CLOZARIL [Suspect]
     Active Substance: CLOZAPINE
     Dosage: 400 MG, QD
     Route: 048
     Dates: start: 20130520, end: 20130523
  8. CLOZARIL [Suspect]
     Active Substance: CLOZAPINE
     Dosage: 550 MG, QD
     Route: 048
     Dates: start: 20130531, end: 20130602
  9. CLOZARIL [Suspect]
     Active Substance: CLOZAPINE
     Dosage: 400 MG, QD
     Route: 048
     Dates: start: 20150312
  10. PANTOSIN [Concomitant]
     Active Substance: PANTETHINE
     Indication: CONSTIPATION
     Dosage: 300 MG, QD
     Route: 048
     Dates: start: 20140224, end: 20150122
  11. GASCON [Concomitant]
     Active Substance: DIMETHICONE
     Indication: CONSTIPATION
     Dosage: 120 MG, QD
     Route: 048
     Dates: start: 20130930, end: 20150122
  12. CLOZARIL [Suspect]
     Active Substance: CLOZAPINE
     Dosage: 125 MG, QD
     Route: 048
     Dates: start: 20130409, end: 20130411
  13. CLOZARIL [Suspect]
     Active Substance: CLOZAPINE
     Dosage: 250 MG, QD
     Route: 048
     Dates: start: 20130510, end: 20130512
  14. CLOZARIL [Suspect]
     Active Substance: CLOZAPINE
     Dosage: 500 MG, QD
     Route: 048
     Dates: start: 20130527, end: 20130530
  15. CLOZARIL [Suspect]
     Active Substance: CLOZAPINE
     Dosage: 300 MG, QD
     Route: 048
     Dates: start: 20131114
  16. CLOZARIL [Suspect]
     Active Substance: CLOZAPINE
     Dosage: 350 MG, QD
     Route: 048
     Dates: start: 20150304, end: 20150311
  17. MAGNESIUM OXIDE. [Concomitant]
     Active Substance: MAGNESIUM OXIDE
     Indication: PRODUCT USED FOR UNKNOWN INDICATION
     Dosage: 1980 MG, QD
     Route: 048
     Dates: start: 20130329
  18. DEPAS [Concomitant]
     Active Substance: ETIZOLAM
     Indication: SCHIZOPHRENIA, PARANOID TYPE
     Dosage: 3 MG, QD
     Route: 048
     Dates: start: 20130329, end: 20130418
  19. BIOFERMIN [Concomitant]
     Active Substance: BACILLUS SUBTILIS\LACTOBACILLUS ACIDOPHILUS\STREPTOCOCCUS FAECAIS
     Indication: CONSTIPATION
     Dosage: 6 G, QD
     Route: 048
     Dates: start: 20140116, end: 20150122
  20. CLOZARIL [Suspect]
     Active Substance: CLOZAPINE
     Dosage: 75 MG, QD
     Route: 048
     Dates: start: 20130405, end: 20130406
  21. CLOZARIL [Suspect]
     Active Substance: CLOZAPINE
     Dosage: 300 MG, QD
     Route: 048
     Dates: start: 20131114, end: 20150303
  22. MAGNESIUM OXIDE. [Concomitant]
     Active Substance: MAGNESIUM OXIDE
     Dosage: 1980 MG, QD
     Route: 048
     Dates: start: 20130930, end: 20150329
  23. CLOZARIL [Suspect]
     Active Substance: CLOZAPINE
     Dosage: 300 MG, QD
     Route: 048
     Dates: start: 20130513, end: 20130516
  24. CLOZARIL [Suspect]
     Active Substance: CLOZAPINE
     Dosage: 300 MG, QD
     Route: 048
     Dates: start: 20130830, end: 20130912
  25. PURSENID [Concomitant]
     Dosage: 36 MG, QD
     Route: 048
     Dates: start: 20130930, end: 20150329
  26. CLOZARIL [Suspect]
     Active Substance: CLOZAPINE
     Indication: SCHIZOPHRENIA, PARANOID TYPE
     Dosage: 12.5 MG, QD
     Route: 048
     Dates: start: 20130329, end: 20130329
  27. CLOZARIL [Suspect]
     Active Substance: CLOZAPINE
     Dosage: 25 MG, QD
     Route: 048
     Dates: start: 20130330, end: 20130401
  28. CLOZARIL [Suspect]
     Active Substance: CLOZAPINE
     Dosage: 200 MG, QD
     Route: 048
     Dates: start: 20130419, end: 20130502
  29. CLOZARIL [Suspect]
     Active Substance: CLOZAPINE
     Dosage: 400 MG, QD
     Route: 048
     Dates: start: 20130913
  30. DAIKENCHUTO [Concomitant]
     Active Substance: HERBALS
     Indication: CONSTIPATION
     Dosage: 15 G, QD
     Route: 048
     Dates: start: 20131018, end: 20150122
  31. CLOZARIL [Suspect]
     Active Substance: CLOZAPINE
     Dosage: 150 MG, QD
     Route: 048
     Dates: start: 20130412, end: 20130414
  32. CLOZARIL [Suspect]
     Active Substance: CLOZAPINE
     Dosage: 225 MG, QD
     Route: 048
     Dates: start: 20130503, end: 20130509
  33. MAGNESIUM OXIDE. [Concomitant]
     Active Substance: MAGNESIUM OXIDE
     Dosage: UNK
     Route: 048
     Dates: start: 20130630
  34. PURSENID [Concomitant]
     Dosage: UNK
     Route: 048
     Dates: start: 20130630
  35. GASMOTIN [Concomitant]
     Active Substance: MOSAPRIDE CITRATE
     Indication: PRODUCT USED FOR UNKNOWN INDICATION
     Dosage: 15 MG, QD
     Route: 048
     Dates: start: 20130329
  36. GASMOTIN [Concomitant]
     Active Substance: MOSAPRIDE CITRATE
     Dosage: UNK
     Route: 048
     Dates: start: 20130630
  37. CLOZARIL [Suspect]
     Active Substance: CLOZAPINE
     Dosage: 600 MG, QD
     Route: 048
     Dates: start: 20130603, end: 20130821
  38. CLOZARIL [Suspect]
     Active Substance: CLOZAPINE
     Dosage: 400 MG, QD
     Route: 048
     Dates: start: 20130930, end: 20131009
  39. CLOZARIL [Suspect]
     Active Substance: CLOZAPINE
     Dosage: 500 MG, QD
     Route: 048
     Dates: start: 20131010, end: 20131113
  40. GASMOTIN [Concomitant]
     Active Substance: MOSAPRIDE CITRATE
     Dosage: 15 MG, QD
     Route: 048
     Dates: start: 20130930, end: 20150122
  41. AMITIZA [Concomitant]
     Active Substance: LUBIPROSTONE
     Indication: PRODUCT USED FOR UNKNOWN INDICATION
     Dosage: 48 UG, QD
     Route: 048
     Dates: start: 20150124, end: 20150329

REACTIONS (11)
  - Neutrophil count increased [Not Recovered/Not Resolved]
  - Loss of consciousness [Recovering/Resolving]
  - Haematocrit decreased [Not Recovered/Not Resolved]
  - Parkinsonism [Recovered/Resolved]
  - White blood cell count increased [Not Recovered/Not Resolved]
  - Blood pressure decreased [Not Recovered/Not Resolved]
  - Electrocardiogram QT prolonged [Recovering/Resolving]
  - Seizure [Recovered/Resolved]
  - Insomnia [Not Recovered/Not Resolved]
  - Nasopharyngitis [Recovered/Resolved]
  - Haemoglobin decreased [Not Recovered/Not Resolved]

NARRATIVE: CASE EVENT DATE: 20130329
